FAERS Safety Report 15590754 (Version 1)
Quarter: 2018Q4

REPORT INFORMATION
  Report Type: Spontaneous
  Country: US (occurrence: US)
  Receive Date: 20181106
  Receipt Date: 20181106
  Transmission Date: 20190205
  Serious: Yes (Other)
  Sender: FDA-Public Use
  Company Number: US-AKORN PHARMACEUTICALS-2018AKN01465

PATIENT
  Sex: Female
  Weight: 74.83 kg

DRUGS (2)
  1. CLARAVIS [Suspect]
     Active Substance: ISOTRETINOIN
     Indication: ACNE
     Dosage: 40 TO 80 MG, 1X/DAY
     Route: 048
     Dates: start: 20180424, end: 20180830
  2. MYORISAN [Suspect]
     Active Substance: ISOTRETINOIN
     Indication: ACNE
     Dosage: 40 TO 80 MG, 1X/DAY
     Route: 048
     Dates: start: 20180316, end: 20180830

REACTIONS (2)
  - Dry skin [Recovered/Resolved]
  - Mood altered [Recovered/Resolved]

NARRATIVE: CASE EVENT DATE: 2018
